FAERS Safety Report 6877473-8 (Version None)
Quarter: 2010Q3

REPORT INFORMATION
  Report Type: 
  Country: None (occurrence: None)
  Receive Date: 20100727
  Receipt Date: 20091104
  Transmission Date: 20110219
  Serious: Yes (Other)
  Sender: FDA-Public Use
  Company Number: US-ABBOTT-09P-163-0606987-00

PATIENT
  Sex: Female
  Weight: 77.18 kg

DRUGS (2)
  1. SYNTHROID [Suspect]
     Indication: HYPOTHYROIDISM
     Dosage: VARIOUS DOSES
  2. SYNTHROID [Suspect]
     Indication: AUTOIMMUNE THYROIDITIS

REACTIONS (4)
  - EYE PAIN [None]
  - FEELING ABNORMAL [None]
  - PULSE ABNORMAL [None]
  - THYROID DISORDER [None]
